FAERS Safety Report 4893012-5 (Version None)
Quarter: 2005Q4

REPORT INFORMATION
  Report Type: 
  Country: None (occurrence: None)
  Receive Date: 20051223
  Receipt Date: 20041122
  Transmission Date: 20060501
  Serious: Yes (Other)
  Sender: FDA-Public Use
  Company Number: PHEH2004US10191

PATIENT
  Age: 44 Year
  Sex: Male
  Weight: 136.1 kg

DRUGS (2)
  1. CLOZARIL [Suspect]
     Indication: SCHIZOPHRENIA
     Dosage: 425 MG, QD, ORAL
     Route: 048
     Dates: start: 20020101
  2. METFORMIN HCL [Suspect]

REACTIONS (6)
  - ALANINE AMINOTRANSFERASE INCREASED [None]
  - ASPARTATE AMINOTRANSFERASE INCREASED [None]
  - BIOPSY LIVER ABNORMAL [None]
  - HEPATIC ENZYME INCREASED [None]
  - HEPATIC FIBROSIS [None]
  - HEPATITIS [None]
